FAERS Safety Report 8188344-1 (Version None)
Quarter: 2012Q1

REPORT INFORMATION
  Report Type: 
  Country: None (occurrence: None)
  Receive Date: 20120306
  Receipt Date: 20120222
  Transmission Date: 20120608
  Serious: No
  Sender: FDA-Public Use
  Company Number: US-ROXANE LABORATORIES, INC.-2012-RO-00693RO

PATIENT
  Sex: Male

DRUGS (1)
  1. PREDNISONE TAB [Suspect]

REACTIONS (1)
  - CARBUNCLE [None]
